FAERS Safety Report 6179751-7 (Version None)
Quarter: 2009Q2

REPORT INFORMATION
  Report Type: 
  Country: None (occurrence: None)
  Receive Date: 20090505
  Receipt Date: 20090430
  Transmission Date: 20091009
  Serious: Yes (Life-Threatening)
  Sender: FDA-Public Use
  Company Number: PL-CELGENEUS-129-C5013-09042720

PATIENT
  Sex: Female
  Weight: 80 kg

DRUGS (1)
  1. CC-5013 [Suspect]
     Indication: MULTIPLE MYELOMA
     Route: 048
     Dates: start: 20070104, end: 20090428

REACTIONS (1)
  - PULMONARY EMBOLISM [None]
